FAERS Safety Report 4672859-4 (Version None)
Quarter: 2005Q2

REPORT INFORMATION
  Report Type: 
  Country: None (occurrence: None)
  Receive Date: 20050524
  Receipt Date: 20050421
  Transmission Date: 20051028
  Serious: Yes (Other)
  Sender: FDA-Public Use
  Company Number: PHNU2005DE01713

PATIENT
  Age: 43 Year
  Sex: Female
  Weight: 51 kg

DRUGS (3)
  1. GEMCITABINE [Concomitant]
     Dates: start: 20040801, end: 20041001
  2. SAMARIUM [153 SM] LEXIDRONAM PENTASODIUM [Concomitant]
     Route: 065
     Dates: start: 20030101
  3. ZOMETA [Suspect]
     Indication: METASTASES TO BONE
     Dosage: 4 MG, QMO
     Route: 042
     Dates: start: 20031001, end: 20041201

REACTIONS (4)
  - ASEPTIC NECROSIS BONE [None]
  - PLASTIC SURGERY [None]
  - SEQUESTRECTOMY [None]
  - TOOTH EXTRACTION [None]
